FAERS Safety Report 5827147-7 (Version None)
Quarter: 2008Q3

REPORT INFORMATION
  Report Type: 
  Country: None (occurrence: None)
  Receive Date: 20080729
  Receipt Date: 20080729
  Transmission Date: 20090109
  Serious: Yes (Hospitalization)
  Sender: FDA-Public Use
  Company Number: None

PATIENT
  Age: 68 Year
  Sex: Male
  Weight: 61.4 kg

DRUGS (8)
  1. XELODA [Suspect]
     Indication: COLON CANCER
     Dosage: ONE-TWO WEEKS
  2. TOPROL-XL [Concomitant]
  3. ARICEPT [Concomitant]
  4. FERROUS SULFATE TAB [Concomitant]
  5. VITAMIN B1 TAB [Concomitant]
  6. CENTRUM [Concomitant]
  7. VITAMIN D3 [Concomitant]
  8. VITAMIN B6 [Concomitant]

REACTIONS (8)
  - ABDOMINAL PAIN [None]
  - ASTHENIA [None]
  - CHILLS [None]
  - DEHYDRATION [None]
  - DIARRHOEA [None]
  - NAUSEA [None]
  - PALMAR-PLANTAR ERYTHRODYSAESTHESIA SYNDROME [None]
  - VOMITING [None]
